FAERS Safety Report 13617866 (Version 2)
Quarter: 2017Q2

REPORT INFORMATION
  Report Type: Spontaneous
  Country: CH (occurrence: CH)
  Receive Date: 20170606
  Receipt Date: 20170612
  Transmission Date: 20170830
  Serious: Yes (Hospitalization, Other)
  Sender: FDA-Public Use
  Company Number: CH-PFIZER INC-2017240804

PATIENT
  Age: 48 Year
  Sex: Male

DRUGS (6)
  1. DIFLUCAN [Suspect]
     Active Substance: FLUCONAZOLE
     Indication: WOUND INFECTION
     Dosage: 200 MG, 1X/DAY 1-0-0
     Route: 042
     Dates: start: 20170113, end: 20170320
  2. INVANZ [Suspect]
     Active Substance: ERTAPENEM SODIUM
     Indication: WOUND INFECTION BACTERIAL
     Dosage: 1 G, 1X/DAY 0-0-1
     Route: 041
     Dates: start: 201702, end: 20170321
  3. ESOMEPRAZOL /01479301/ [Concomitant]
     Active Substance: ESOMEPRAZOLE
     Dosage: 40 MG, 1X/DAY
     Route: 040
  4. VANCOCIN [Concomitant]
     Active Substance: VANCOMYCIN HYDROCHLORIDE
     Dosage: 500 MG, 2X/DAY (0.5-0-0.5)
     Route: 042
     Dates: start: 20170204, end: 20170321
  5. CODEIN KNOLL [Concomitant]
     Active Substance: CODEINE PHOSPHATE
     Dosage: 20 MG, 4X/DAY (0.5-0.5-0.5-0.5)
     Route: 048
     Dates: start: 2017, end: 2017
  6. FRAGMIN [Concomitant]
     Active Substance: DALTEPARIN SODIUM
     Dosage: 10000 IU, 1X/DAY 0-0-1
     Route: 058

REACTIONS (5)
  - Hallucination [Recovered/Resolved]
  - Delirium [Recovered/Resolved]
  - Ataxia [Recovered/Resolved]
  - Myoclonus [Recovered/Resolved]
  - Tremor [Recovered/Resolved]

NARRATIVE: CASE EVENT DATE: 20170322
